FAERS Safety Report 24253728 (Version 1)
Quarter: 2024Q3

REPORT INFORMATION
  Report Type: Spontaneous
  Country: IN (occurrence: IN)
  Receive Date: 20240827
  Receipt Date: 20240827
  Transmission Date: 20241017
  Serious: Yes (Other)
  Sender: ACCORD
  Company Number: IN-Accord-442697

PATIENT
  Age: 55 Year
  Sex: Female

DRUGS (1)
  1. HYDROCHLOROTHIAZIDE [Suspect]
     Active Substance: HYDROCHLOROTHIAZIDE
     Indication: Hypertension

REACTIONS (4)
  - Choroidal effusion [Recovered/Resolved]
  - Angle closure glaucoma [Recovered/Resolved]
  - Choroidal detachment [Recovered/Resolved]
  - Idiosyncratic drug reaction [Recovered/Resolved]
